APPROVED DRUG PRODUCT: RISEDRONATE SODIUM
Active Ingredient: RISEDRONATE SODIUM
Strength: 30MG
Dosage Form/Route: TABLET;ORAL
Application: A205280 | Product #001 | TE Code: AB
Applicant: ORBION PHARMACEUTICALS PRIVATE LTD
Approved: May 13, 2019 | RLD: No | RS: No | Type: RX